FAERS Safety Report 9576156 (Version 1)
Quarter: 2013Q4

REPORT INFORMATION
  Report Type: Spontaneous
  Country: US (occurrence: US)
  Receive Date: 20131001
  Receipt Date: 20131001
  Transmission Date: 20140711
  Serious: No
  Sender: FDA-Public Use
  Company Number: US-AMGEN-USASP2013001388

PATIENT
  Age: 52 Year
  Sex: Male
  Weight: 88 kg

DRUGS (4)
  1. ENBREL [Suspect]
     Indication: PSORIATIC ARTHROPATHY
     Dosage: 50 MG, QWK
     Route: 058
  2. AMLODIPINE [Concomitant]
     Dosage: 10 MG, UNK
     Route: 048
  3. PRAVASTATIN [Concomitant]
     Dosage: 10 MG, UNK
     Route: 048
  4. ALEVE [Concomitant]
     Dosage: 220 MG, UNK
     Route: 048

REACTIONS (3)
  - Dizziness [Unknown]
  - Dyspnoea [Unknown]
  - Cough [Unknown]
